FAERS Safety Report 17082125 (Version 1)
Quarter: 2019Q4

REPORT INFORMATION
  Report Type: Spontaneous
  Country: US (occurrence: US)
  Receive Date: 20191127
  Receipt Date: 20191127
  Transmission Date: 20200122
  Serious: No
  Sender: FDA-Public Use
  Company Number: US-PFIZER INC-2019509302

PATIENT
  Age: 25 Year

DRUGS (1)
  1. EFFEXOR [Suspect]
     Active Substance: VENLAFAXINE HYDROCHLORIDE
     Dosage: UNK

REACTIONS (4)
  - Anxiety [Unknown]
  - Tachyphrenia [Unknown]
  - Feeling abnormal [Unknown]
  - Muscle tightness [Unknown]
